FAERS Safety Report 4673376-8 (Version None)
Quarter: 2005Q2

REPORT INFORMATION
  Report Type: 
  Country: None (occurrence: None)
  Receive Date: 20050523
  Receipt Date: 20050512
  Transmission Date: 20051028
  Serious: Yes (Life-Threatening, Hospitalization)
  Sender: FDA-Public Use
  Company Number: TR-2005-007580

PATIENT
  Age: 75 Year
  Sex: Female

DRUGS (7)
  1. ULTRAVIST 370 [Suspect]
     Indication: ARTERIOGRAM CORONARY
     Dosage: 200 ML, 1 DOSE, INTRAVENOUS
     Route: 042
     Dates: start: 20050511, end: 20050511
  2. NORVASC/DEN/(AMLODIPINE BESILATE) [Concomitant]
  3. CORASPIN (ACETYLSALICYLIC ACID) [Concomitant]
  4. BELOC [Concomitant]
  5. PLAVIX [Concomitant]
  6. LIPITOR/NET/(ATORVASTATIN CALCIUM) [Concomitant]
  7. VASTAREL ^BIOPHARMA^ (TRIMETAZIDINE HYDROCHLORIDE) [Concomitant]

REACTIONS (2)
  - DIPLOPIA [None]
  - POST PROCEDURAL COMPLICATION [None]
